FAERS Safety Report 17548495 (Version 2)
Quarter: 2020Q1

REPORT INFORMATION
  Report Type: Spontaneous
  Country: BE (occurrence: BE)
  Receive Date: 20200317
  Receipt Date: 20200320
  Transmission Date: 20200409
  Serious: Yes (Hospitalization, Other)
  Sender: FDA-Public Use
  Company Number: BE-AUROBINDO-AUR-APL-2020-012432

PATIENT
  Age: 56 Year
  Sex: Male
  Weight: 120 kg

DRUGS (8)
  1. CHOLECALCIFEROL [Concomitant]
     Active Substance: CHOLECALCIFEROL
     Indication: VITAMIN D DEFICIENCY
     Dosage: 25000 UNK EVERY MONTH
     Route: 065
     Dates: start: 20100610
  2. VALPROATE [Concomitant]
     Active Substance: VALPROIC ACID
     Indication: EPILEPSY
     Dosage: 500 MILLIGRAM, 3 TIMES A DAY
     Route: 065
  3. CALCIUM GLUCONATE. [Concomitant]
     Active Substance: CALCIUM GLUCONATE
     Indication: PRODUCT USED FOR UNKNOWN INDICATION
     Dosage: 3 GRAM
     Route: 042
  4. EPREX [Suspect]
     Active Substance: ERYTHROPOIETIN
     Indication: NEPHROGENIC ANAEMIA
     Dosage: 10000 UNIT, 2 TIMES/WK
     Route: 042
     Dates: start: 201005
  5. OLANZAPINE. [Concomitant]
     Active Substance: OLANZAPINE
     Indication: BIPOLAR I DISORDER
     Dosage: 10 MILLIGRAM, ONCE A DAY
     Route: 065
  6. CINACALCET [CINACALCET HYDROCHLORIDE] [Suspect]
     Active Substance: CINACALCET HYDROCHLORIDE
     Indication: HYPERPARATHYROIDISM SECONDARY
     Dosage: 30 MILLIGRAM, ONCE A DAY
     Route: 048
     Dates: start: 201011
  7. CINACALCET  [CINACALCET HYDROCHLORIDE] [Suspect]
     Active Substance: CINACALCET HYDROCHLORIDE
     Indication: HYPERPARATHYROIDISM
  8. FERRIC CARBOXYMALTOSE [Concomitant]
     Active Substance: FERRIC CARBOXYMALTOSE
     Indication: PRODUCT USED FOR UNKNOWN INDICATION
     Dosage: UNK
     Route: 065

REACTIONS (3)
  - Therapy non-responder [Recovered/Resolved]
  - Tumour necrosis [Recovered/Resolved]
  - Treatment noncompliance [Unknown]

NARRATIVE: CASE EVENT DATE: 20150116
